FAERS Safety Report 22002594 (Version 1)
Quarter: 2023Q1

REPORT INFORMATION
  Report Type: Report from Study
  Country: BR (occurrence: BR)
  Receive Date: 20230217
  Receipt Date: 20230217
  Transmission Date: 20230418
  Serious: Yes (Hospitalization, Other)
  Sender: FDA-Public Use
  Company Number: BR-CELLTRION INC.-2023BR003243

PATIENT

DRUGS (3)
  1. INFLIXIMAB [Suspect]
     Active Substance: INFLIXIMAB
     Indication: Crohn^s disease
     Dosage: UNK, 3 AMPOULES EVERY 4 WEEKS
     Route: 042
     Dates: start: 20220924
  2. LOPERAMIDE [Concomitant]
     Active Substance: LOPERAMIDE
     Indication: Ileostomy
     Dosage: UNK, 8 PILLS A DAY
     Route: 048
     Dates: start: 20230130
  3. SULFASALAZINE [Concomitant]
     Active Substance: SULFASALAZINE
     Indication: Crohn^s disease
     Dosage: 500 MG, 4 PILLS A DAY
     Route: 048

REACTIONS (7)
  - Surgery [Unknown]
  - Large intestine perforation [Unknown]
  - Palpitations [Unknown]
  - Dyspnoea [Unknown]
  - Stenosis [Unknown]
  - Intentional dose omission [Unknown]
  - Off label use [Unknown]

NARRATIVE: CASE EVENT DATE: 20230127
